FAERS Safety Report 4339530-X (Version None)
Quarter: 2004Q2

REPORT INFORMATION
  Report Type: 
  Country: None (occurrence: None)
  Receive Date: 20040415
  Receipt Date: 20011214
  Transmission Date: 20050107
  Serious: Yes (Hospitalization)
  Sender: FDA-Public Use
  Company Number: PHHO2001DE10111

PATIENT
  Sex: Female
  Weight: 81 kg

DRUGS (7)
  1. EXELON [Suspect]
     Indication: COGNITIVE DISORDER
     Dosage: DOSE LEVEL 2
     Route: 048
     Dates: start: 20000313, end: 20011102
  2. ASPIRIN [Suspect]
  3. SIMVASTATIN [Suspect]
     Indication: HYPERCHOLESTEROLAEMIA
     Dosage: 5 MG, QD
  4. VITAMIN E [Concomitant]
     Indication: ALOPECIA
  5. BISOPROLOL [Suspect]
  6. ADALAT [Suspect]
  7. PLACEBO [Suspect]

REACTIONS (9)
  - DIZZINESS [None]
  - DRUG INTERACTION [None]
  - DUODENITIS [None]
  - GASTRITIS [None]
  - HEART RATE DECREASED [None]
  - HYPERTENSION [None]
  - HYPERTENSIVE CRISIS [None]
  - MYOCARDIAL INFARCTION [None]
  - NEPHRITIS [None]
